FAERS Safety Report 6472117-1 (Version None)
Quarter: 2009Q4

REPORT INFORMATION
  Report Type: 
  Country: None (occurrence: None)
  Receive Date: 20091203
  Receipt Date: 20080418
  Transmission Date: 20100525
  Serious: Yes (Hospitalization)
  Sender: FDA-Public Use
  Company Number: US-ELI_LILLY_AND_COMPANY-US200804004888

PATIENT
  Sex: Male

DRUGS (1)
  1. FORTEO [Suspect]
     Dosage: UNK, UNK
     Dates: start: 20060101

REACTIONS (12)
  - ABNORMAL BEHAVIOUR [None]
  - CANDIDIASIS [None]
  - DEHYDRATION [None]
  - DEVICE BREAKAGE [None]
  - EATING DISORDER [None]
  - FALL [None]
  - GENERAL PHYSICAL HEALTH DETERIORATION [None]
  - HERPES ZOSTER [None]
  - ILL-DEFINED DISORDER [None]
  - LOWER LIMB FRACTURE [None]
  - MALNUTRITION [None]
  - WEIGHT DECREASED [None]
